FAERS Safety Report 4900312-9 (Version None)
Quarter: 2006Q1

REPORT INFORMATION
  Report Type: 
  Country: None (occurrence: None)
  Receive Date: 20060203
  Receipt Date: 20040805
  Transmission Date: 20060701
  Serious: Yes (Death)
  Sender: FDA-Public Use
  Company Number: US-GLAXOSMITHKLINE-A0521943A

PATIENT
  Age: 20 Year
  Sex: Male
  Weight: 70.9 kg

DRUGS (2)
  1. PAXIL [Suspect]
     Indication: DEPRESSION
     Dosage: 20MG PER DAY
     Route: 048
     Dates: start: 20030618
  2. WELLBUTRIN [Concomitant]
     Indication: ANXIETY
     Dosage: 200MG PER DAY
     Route: 048
     Dates: start: 20030101

REACTIONS (4)
  - COMPLETED SUICIDE [None]
  - HEAD INJURY [None]
  - INJURY [None]
  - THINKING ABNORMAL [None]
